FAERS Safety Report 19685594 (Version 1)
Quarter: 2021Q3

REPORT INFORMATION
  Report Type: Spontaneous
  Country: NL (occurrence: NL)
  Receive Date: 20210811
  Receipt Date: 20210811
  Transmission Date: 20211014
  Serious: Yes (Other)
  Sender: FDA-Public Use
  Company Number: NL-SUN PHARMACEUTICAL INDUSTRIES LTD-2021RR-307307

PATIENT
  Age: 53 Year
  Sex: Female
  Weight: 115 kg

DRUGS (7)
  1. MORFINE TABLET MGA  10MG (HCL) / BRAND NAME NOT SPECIFIEDMORFINE TA... [Concomitant]
     Indication: PRODUCT USED FOR UNKNOWN INDICATION
     Dosage: MODIFIED?RELEASE TABLET, 10 MG (MILLIGRAMS)
     Route: 065
  2. MACROGOL/ZOUTEN PDR V DRANK (MOVIC/MOLAX/LAXT/GEN) / MOVICOLON POED... [Concomitant]
     Indication: PRODUCT USED FOR UNKNOWN INDICATION
     Dosage: POWDER FOR DRINK
     Route: 065
  3. ALPRAZOLAM TABLET MGA 1MG / XANAX RETARD TABLET MGA 1MGXANAX RETARD... [Concomitant]
     Indication: PRODUCT USED FOR UNKNOWN INDICATION
     Dosage: 2X1MG RETARD ()
     Route: 065
  4. OMEPRAZOL TABLET MSR 40MG / BRAND NAME NOT SPECIFIEDOMEPRAZOL TABLE... [Concomitant]
     Indication: PRODUCT USED FOR UNKNOWN INDICATION
     Dosage: 40 MG ()
     Route: 065
  5. METHADON TABLET  5MG / BRAND NAME NOT SPECIFIEDMETHADON TABLET  5MG [Concomitant]
     Indication: PRODUCT USED FOR UNKNOWN INDICATION
     Dosage: 5X5MG ()
     Route: 065
  6. MORFINE TABLET AFBOUW ? NON?CURRENT DRUG / BRAND NAME NOT SPECIFIED... [Concomitant]
     Indication: PRODUCT USED FOR UNKNOWN INDICATION
     Dosage: 4X5MG ()
     Route: 065
  7. PREGABALIN. [Suspect]
     Active Substance: PREGABALIN
     Indication: PAIN
     Dosage: 3X A DAY, CAPSULE
     Route: 065
     Dates: start: 201901

REACTIONS (4)
  - Pulmonary oedema [Not Recovered/Not Resolved]
  - Respiratory tract infection [Not Recovered/Not Resolved]
  - Weight increased [Not Recovered/Not Resolved]
  - Dyspnoea [Not Recovered/Not Resolved]

NARRATIVE: CASE EVENT DATE: 20191113
